FAERS Safety Report 21476612 (Version 2)
Quarter: 2022Q4

REPORT INFORMATION
  Report Type: Report from Study
  Country: US (occurrence: US)
  Receive Date: 20221019
  Receipt Date: 20221026
  Transmission Date: 20230113
  Serious: Yes (Other)
  Sender: FDA-Public Use
  Company Number: US-BoehringerIngelheim-2021-BI-079840

PATIENT
  Age: 73 Year
  Sex: Male

DRUGS (2)
  1. OFEV [Suspect]
     Active Substance: NINTEDANIB
     Indication: Idiopathic pulmonary fibrosis
     Dosage: 3781,3782,100790,101966, 102653, 102655Z, 102655
     Route: 048
     Dates: start: 20200713
  2. TYVASO [Suspect]
     Active Substance: TREPROSTINIL
     Indication: Product used for unknown indication

REACTIONS (21)
  - Pulmonary hypertension [Unknown]
  - Hypersensitivity pneumonitis [Unknown]
  - Nausea [Recovered/Resolved]
  - Vomiting [Recovered/Resolved]
  - Abdominal pain upper [Recovered/Resolved]
  - Decreased appetite [Unknown]
  - Headache [Unknown]
  - Chest pain [Unknown]
  - Epistaxis [Unknown]
  - Cough [Unknown]
  - Nausea [Unknown]
  - Vomiting [Unknown]
  - Diarrhoea [Unknown]
  - Nausea [Recovered/Resolved]
  - Vomiting [Recovered/Resolved]
  - Heart rate increased [Unknown]
  - Oedema peripheral [Unknown]
  - Drug intolerance [Unknown]
  - Dyspnoea [Unknown]
  - Insomnia [Unknown]
  - General physical health deterioration [Unknown]

NARRATIVE: CASE EVENT DATE: 20200701
